FAERS Safety Report 18952904 (Version 1)
Quarter: 2021Q1

REPORT INFORMATION
  Report Type: Spontaneous
  Country: US (occurrence: US)
  Receive Date: 20210226
  Receipt Date: 20210226
  Transmission Date: 20210420
  Serious: No
  Sender: FDA-Public Use
  Company Number: None

PATIENT
  Age: 36 Year
  Sex: Female
  Weight: 54 kg

DRUGS (1)
  1. DEXTROAMPHET SACCHARAT, AMPHET ASPARTATE, DEXTROAMPHET SULFATE AND AMPHET SULFAT [Suspect]
     Active Substance: AMPHETAMINE ASPARTATE\AMPHETAMINE SULFATE\DEXTROAMPHETAMINE SACCHARATE\DEXTROAMPHETAMINE SULFATE
     Indication: ATTENTION DEFICIT HYPERACTIVITY DISORDER
     Route: 048
     Dates: start: 20210225, end: 20210226

REACTIONS (9)
  - Nausea [None]
  - Vomiting [None]
  - Asthenia [None]
  - Head discomfort [None]
  - Headache [None]
  - Diarrhoea [None]
  - Product substitution issue [None]
  - Disturbance in attention [None]
  - Malaise [None]

NARRATIVE: CASE EVENT DATE: 20210225
